FAERS Safety Report 19653244 (Version 2)
Quarter: 2021Q3

REPORT INFORMATION
  Report Type: Report from Study
  Country: IT (occurrence: IT)
  Receive Date: 20210803
  Receipt Date: 20210809
  Transmission Date: 20211014
  Serious: Yes (Hospitalization, Other)
  Sender: FDA-Public Use
  Company Number: IT-PFIZER INC-202100952420

PATIENT
  Age: 73 Year
  Sex: Female

DRUGS (3)
  1. CYMBALTA [Suspect]
     Active Substance: DULOXETINE HYDROCHLORIDE
     Indication: DEPRESSION
     Route: 048
  2. LYRICA [Suspect]
     Active Substance: PREGABALIN
     Indication: MAJOR DEPRESSION
     Dosage: UNK
     Route: 048
     Dates: start: 20210601
  3. DENIBAN [Suspect]
     Active Substance: AMISULPRIDE
     Indication: DEPRESSION
     Dosage: UNK
     Route: 048

REACTIONS (3)
  - Hypotension [Recovered/Resolved]
  - Drug abuse [Unknown]
  - Off label use [Unknown]

NARRATIVE: CASE EVENT DATE: 20210623
